FAERS Safety Report 19729228 (Version 2)
Quarter: 2021Q3

REPORT INFORMATION
  Report Type: Spontaneous
  Country: US (occurrence: US)
  Receive Date: 20210820
  Receipt Date: 20210908
  Transmission Date: 20211014
  Serious: No
  Sender: FDA-Public Use
  Company Number: US-009507513-2108USA005277

PATIENT
  Age: 82 Year
  Sex: Female

DRUGS (10)
  1. ROCURONIUM [Concomitant]
     Active Substance: ROCURONIUM BROMIDE
     Dosage: 50 MILLIGRAM
     Route: 042
  2. CEFOXITIN [Concomitant]
     Active Substance: CEFOXITIN SODIUM
     Indication: ANTIBIOTIC PROPHYLAXIS
     Dosage: 2 GRAM
  3. INVANZ [Suspect]
     Active Substance: ERTAPENEM SODIUM
     Indication: PROPHYLAXIS
     Dosage: 1 GRAM
  4. HYDROMORPHONE [Concomitant]
     Active Substance: HYDROMORPHONE
     Indication: ANALGESIC THERAPY
     Dosage: 2 MG, PRN
     Route: 048
  5. TRELEGY ELLIPTA [Concomitant]
     Active Substance: FLUTICASONE FUROATE\UMECLIDINIUM BROMIDE\VILANTEROL TRIFENATATE
     Dosage: 100?62.5?25 MCG DAILY
  6. MONTELUKAST [Concomitant]
     Active Substance: MONTELUKAST SODIUM
  7. PROPOFOL. [Concomitant]
     Active Substance: PROPOFOL
     Dosage: 50 MILLIGRAM
     Route: 042
  8. LIDOCAINE. [Concomitant]
     Active Substance: LIDOCAINE
     Dosage: 5 MILLILITER
     Route: 042
  9. AZELASTINE. [Concomitant]
     Active Substance: AZELASTINE HYDROCHLORIDE
     Route: 045
  10. FENTANYL. [Concomitant]
     Active Substance: FENTANYL
     Indication: ANALGESIC THERAPY
     Dosage: 50 MICROGRAM
     Route: 042

REACTIONS (1)
  - Product use in unapproved indication [Unknown]
